FAERS Safety Report 14307191 (Version 1)
Quarter: 2017Q4

REPORT INFORMATION
  Report Type: Spontaneous
  Country: US (occurrence: US)
  Receive Date: 20171220
  Receipt Date: 20171220
  Transmission Date: 20180321
  Serious: No
  Sender: FDA-Public Use
  Company Number: US-TEVA-765704ACC

PATIENT
  Sex: Female

DRUGS (7)
  1. VESICARE [Interacting]
     Active Substance: SOLIFENACIN SUCCINATE
  2. CLARITHROMYCIN. [Interacting]
     Active Substance: CLARITHROMYCIN
     Dates: start: 2013, end: 201307
  3. LANSOPRAZOLE. [Interacting]
     Active Substance: LANSOPRAZOLE
     Dates: start: 2013, end: 201307
  4. VESICARE [Interacting]
     Active Substance: SOLIFENACIN SUCCINATE
     Indication: POLLAKIURIA
     Dosage: 5 MILLIGRAM DAILY;
  5. METRONIDAZOLE. [Suspect]
     Active Substance: METRONIDAZOLE
     Dates: start: 2013, end: 201307
  6. VESICARE [Interacting]
     Active Substance: SOLIFENACIN SUCCINATE
     Dosage: 10 MILLIGRAM DAILY; 10MG IN THE MORNING
     Dates: start: 2012, end: 2013
  7. VESICARE [Interacting]
     Active Substance: SOLIFENACIN SUCCINATE
     Dosage: 10 MILLIGRAM DAILY; 10MG AT BED TIME
     Dates: start: 201307

REACTIONS (11)
  - Somnolence [Unknown]
  - Insomnia [Unknown]
  - Adverse event [Unknown]
  - Urinary incontinence [Unknown]
  - Nocturia [Unknown]
  - Malaise [Unknown]
  - Drug interaction [Unknown]
  - Hot flush [Unknown]
  - Hyperhidrosis [Unknown]
  - Feeling hot [Unknown]
  - Fatigue [Unknown]
